FAERS Safety Report 14730046 (Version 3)
Quarter: 2018Q4

REPORT INFORMATION
  Report Type: Report from Study
  Country: US (occurrence: US)
  Receive Date: 20180406
  Receipt Date: 20181018
  Transmission Date: 20190204
  Serious: Yes (Life-Threatening, Hospitalization, Other)
  Sender: FDA-Public Use
  Company Number: US-ACTELION-A-US2018-170066

PATIENT
  Age: 66 Year
  Sex: Female

DRUGS (1)
  1. OPSUMIT [Suspect]
     Active Substance: MACITENTAN
     Indication: PORTOPULMONARY HYPERTENSION
     Dosage: 10 MG, QD
     Route: 048
     Dates: start: 20180405

REACTIONS (5)
  - Coma [Recovered/Resolved]
  - Blood test abnormal [Not Recovered/Not Resolved]
  - Ammonia increased [Recovering/Resolving]
  - Transfusion [Unknown]
  - Anaemia [Recovering/Resolving]
